FAERS Safety Report 9861090 (Version 1)
Quarter: 2014Q1

REPORT INFORMATION
  Report Type: Spontaneous
  Country: GB (occurrence: GB)
  Receive Date: 20140202
  Receipt Date: 20140202
  Transmission Date: 20141002
  Serious: No
  Sender: FDA-Public Use
  Company Number: GB-ALLERGAN-1303611US

PATIENT
  Age: 50 Year
  Sex: Female

DRUGS (2)
  1. BOTOX [Suspect]
     Indication: HEAD TITUBATION
     Dosage: UNK, SINGLE
     Route: 030
     Dates: start: 201301, end: 201301
  2. BOTOX [Suspect]
     Indication: TORTICOLLIS

REACTIONS (2)
  - Rash generalised [Recovered/Resolved]
  - Malaise [Recovered/Resolved]
